FAERS Safety Report 6498769-8 (Version None)
Quarter: 2009Q4

REPORT INFORMATION
  Report Type: 
  Country: None (occurrence: None)
  Receive Date: 20091127
  Receipt Date: 20091105
  Transmission Date: 20100525
  Serious: Yes (Hospitalization)
  Sender: FDA-Public Use
  Company Number: 289576

PATIENT
  Age: 59 Year
  Sex: Male
  Weight: 117.9 kg

DRUGS (16)
  1. NOVOLOG [Suspect]
     Indication: INSULIN-REQUIRING TYPE 2 DIABETES MELLITUS
     Dosage: 25 LU, WITH EACH MEAL, SUBCUTANEOUS
     Route: 058
  2. LEVEMIR [Suspect]
     Indication: INSULIN-REQUIRING TYPE 2 DIABETES MELLITUS
     Dosage: 160 LU, QD AT NIGHT, SUBCUTANEOUS
     Route: 058
     Dates: start: 20080501
  3. COREG CR (CARVEDILOL) [Concomitant]
  4. COLESTIPOL HYDROCHLORIDE [Concomitant]
  5. IRON (IRON) [Concomitant]
  6. FLONASE [Concomitant]
  7. FEXOFENADINE HYDROCHLORIDE [Concomitant]
  8. VYTORIN [Concomitant]
  9. BENICAR [Concomitant]
  10. ZANTAC	/00550801/ (RANITIDINE) [Concomitant]
  11. GABAPENTIN [Concomitant]
  12. VERAPAMIL HYDROCHLOIRDE (VERAPAMIL HYDROCHLORIDE) [Concomitant]
  13. TORSEMIDE [Concomitant]
  14. ASPIRIN [Concomitant]
  15. CENTRUM SILVER/01292501/ (ASCORBIC ACID, CALCIUM, MINERALS NOS, RETINO [Concomitant]
  16. VITAMIN D [Concomitant]

REACTIONS (4)
  - ACCIDENTAL OVERDOSE [None]
  - BLOOD GLUCOSE DECREASED [None]
  - HYPOGLYCAEMIC COMA [None]
  - HYPOGLYCAEMIC SEIZURE [None]
